FAERS Safety Report 5449438-4 (Version None)
Quarter: 2007Q3

REPORT INFORMATION
  Report Type: 
  Country: None (occurrence: None)
  Receive Date: 20070907
  Receipt Date: 20070829
  Transmission Date: 20080115
  Serious: Yes (Death)
  Sender: FDA-Public Use
  Company Number: US021147

PATIENT
  Sex: Female

DRUGS (4)
  1. ACTIQ [Suspect]
     Indication: BREAKTHROUGH PAIN
     Dosage: 200 UG BUCCAL
     Route: 002
     Dates: start: 20070705
  2. ACTIQ [Suspect]
     Indication: CANCER PAIN
     Dosage: 200 UG BUCCAL
     Route: 002
     Dates: start: 20070705
  3. MORPHINE [Concomitant]
  4. METAMIZOLE [Concomitant]

REACTIONS (1)
  - HYPOPHARYNGEAL CANCER [None]
